FAERS Safety Report 16292519 (Version 1)
Quarter: 2019Q2

REPORT INFORMATION
  Report Type: Report from Study
  Country: US (occurrence: US)
  Receive Date: 20190509
  Receipt Date: 20190509
  Transmission Date: 20190711
  Serious: Yes (Life-Threatening, Hospitalization, Other)
  Sender: FDA-Public Use
  Company Number: US-ALKERMES INC.-ALK-2018-003095

PATIENT
  Age: 44 Year
  Sex: Female
  Weight: 77 kg

DRUGS (6)
  1. NAPROXEN. [Concomitant]
     Active Substance: NAPROXEN
     Indication: SPINAL CORD INFECTION
     Dosage: 500 MG, BID
     Route: 048
  2. ZOLOFT [Concomitant]
     Active Substance: SERTRALINE HYDROCHLORIDE
     Indication: BIPOLAR II DISORDER
     Dosage: 50 MG, QD
     Route: 048
     Dates: start: 20060106
  3. VIVITROL [Suspect]
     Active Substance: NALTREXONE
     Indication: DRUG DEPENDENCE
     Dosage: 380 MG, QMO
     Route: 030
  4. PRILOSEC [Concomitant]
     Active Substance: OMEPRAZOLE MAGNESIUM
     Indication: GASTROOESOPHAGEAL REFLUX DISEASE
     Dosage: 20 MG, BID
     Route: 048
     Dates: start: 20041001
  5. NEURONTIN [Concomitant]
     Active Substance: GABAPENTIN
     Indication: BIPOLAR II DISORDER
     Dosage: 600 MG, TID
     Route: 048
     Dates: start: 20010211
  6. DOXICYCLINE [Concomitant]
     Indication: SPINAL CORD INFECTION
     Dosage: 100 MG, BID
     Route: 048
     Dates: start: 20171122

REACTIONS (7)
  - Bronchitis [Unknown]
  - Overdose [Recovered/Resolved]
  - Loss of consciousness [Recovered/Resolved]
  - Drug dependence [Not Recovered/Not Resolved]
  - Hypothermia [Recovered/Resolved]
  - Substance abuse [Recovered/Resolved]
  - Imprisonment [Not Recovered/Not Resolved]

NARRATIVE: CASE EVENT DATE: 20180309
